FAERS Safety Report 11452993 (Version 1)
Quarter: 2015Q3

REPORT INFORMATION
  Report Type: Spontaneous
  Country: US (occurrence: US)
  Receive Date: 20150903
  Receipt Date: 20150903
  Transmission Date: 20151125
  Serious: No
  Sender: FDA-Public Use
  Company Number: US-ROCHE-1058867

PATIENT
  Age: 68 Year
  Sex: Female

DRUGS (6)
  1. PEGASYS [Suspect]
     Active Substance: PEGINTERFERON ALFA-2A
     Indication: HEPATITIS C
     Dosage: APPROXIMATELY 2 YEARS AGO
     Route: 065
  2. RIBASPHERE [Suspect]
     Active Substance: RIBAVIRIN
     Indication: HEPATITIS C
     Dosage: APPROXIMATELY 2 YEARS AGO
     Route: 065
  3. BOCEPREVIR [Suspect]
     Active Substance: BOCEPREVIR
     Indication: HEPATITIS C
     Route: 048
     Dates: start: 20120314, end: 20120411
  4. PEGASYS [Suspect]
     Active Substance: PEGINTERFERON ALFA-2A
     Route: 058
     Dates: start: 20120314, end: 20120411
  5. RIBASPHERE [Suspect]
     Active Substance: RIBAVIRIN
     Route: 048
     Dates: start: 20120314, end: 20120411
  6. LACTULOSE. [Concomitant]
     Active Substance: LACTULOSE
     Indication: ENCEPHALOPATHY
     Route: 048
     Dates: start: 20120113

REACTIONS (13)
  - Dyspnoea [Unknown]
  - Neuropathy peripheral [Unknown]
  - Expired product administered [Unknown]
  - Nausea [Recovered/Resolved]
  - Tremor [Unknown]
  - Headache [Unknown]
  - Hot flush [Unknown]
  - Chills [Unknown]
  - Depression [Unknown]
  - Myalgia [Recovered/Resolved]
  - Influenza like illness [Unknown]
  - Haemoglobin decreased [Unknown]
  - Fatigue [Recovered/Resolved]

NARRATIVE: CASE EVENT DATE: 20120321
